FAERS Safety Report 25108442 (Version 1)
Quarter: 2025Q1

REPORT INFORMATION
  Report Type: Spontaneous
  Country: GB (occurrence: GB)
  Receive Date: 20250322
  Receipt Date: 20250322
  Transmission Date: 20250408
  Serious: Yes (Other)
  Sender: AUROBINDO
  Company Number: GB-MHRA-MED-202503071052226950-ZTSNJ

PATIENT
  Age: 42 Year
  Sex: Female
  Weight: 79 kg

DRUGS (1)
  1. ERYTHROMYCIN [Suspect]
     Active Substance: ERYTHROMYCIN
     Indication: Lower respiratory tract infection
     Dosage: 250 MILLIGRAM, FOUR TIMES/DAY, TWO TABLETS
     Route: 065
     Dates: start: 20250305, end: 20250307

REACTIONS (1)
  - Epistaxis [Recovering/Resolving]

NARRATIVE: CASE EVENT DATE: 20250305
